FAERS Safety Report 10554037 (Version 2)
Quarter: 2015Q2

REPORT INFORMATION
  Report Type: Spontaneous
  Country: CG (occurrence: CG)
  Receive Date: 20141030
  Receipt Date: 20150626
  Transmission Date: 20150821
  Serious: Yes (Death)
  Sender: FDA-Public Use
  Company Number: CG-UCBSA-2014015932

PATIENT
  Age: 24 Year
  Sex: Female

DRUGS (2)
  1. KEPPRA [Suspect]
     Active Substance: LEVETIRACETAM
     Indication: GENERALISED TONIC-CLONIC SEIZURE
     Dosage: 500 MG, 2X/DAY (BID)
     Dates: start: 20140822, end: 201409
  2. PHENOBARBITAL. [Concomitant]
     Active Substance: PHENOBARBITAL
     Indication: GENERALISED TONIC-CLONIC SEIZURE
     Dosage: 100 MG
     Dates: start: 20140822

REACTIONS (4)
  - Swelling [Unknown]
  - Pain [Unknown]
  - Skin exfoliation [Fatal]
  - Burning sensation [Unknown]

NARRATIVE: CASE EVENT DATE: 2014
